FAERS Safety Report 8456816-8 (Version None)
Quarter: 2012Q2

REPORT INFORMATION
  Report Type: 
  Country: None (occurrence: None)
  Receive Date: 20120621
  Receipt Date: 20120618
  Transmission Date: 20120825
  Serious: Yes (Hospitalization)
  Sender: FDA-Public Use
  Company Number: US-PFIZER INC-2012140531

PATIENT
  Sex: Female
  Weight: 92 kg

DRUGS (5)
  1. PROTONIX [Suspect]
     Indication: GASTRIC DISORDER
     Dosage: 40 MG, 1X/DAY
     Route: 048
     Dates: start: 20110101, end: 20120401
  2. DILANTIN [Concomitant]
     Indication: CONVULSION
     Dosage: UNK
  3. PHENOBARBITAL [Concomitant]
     Indication: CONVULSION
     Dosage: UNK
  4. ATENOLOL [Concomitant]
     Indication: HYPERTENSION
     Dosage: 25 MG, 1X/DAY
  5. DIAZEPAM [Concomitant]
     Indication: CONVULSION
     Dosage: UNK

REACTIONS (4)
  - VOMITING [None]
  - GASTROINTESTINAL PAIN [None]
  - GASTRIC DISORDER [None]
  - NAUSEA [None]
